FAERS Safety Report 10264233 (Version 1)
Quarter: 2014Q2

REPORT INFORMATION
  Report Type: Spontaneous
  Country: RU (occurrence: RU)
  Receive Date: 20140627
  Receipt Date: 20140627
  Transmission Date: 20141212
  Serious: Yes (Hospitalization)
  Sender: FDA-Public Use
  Company Number: RU-ASTRAZENECA-2014SE45661

PATIENT
  Age: 61 Year
  Sex: Female

DRUGS (3)
  1. SYMBICORT [Suspect]
     Indication: ASTHMA
     Route: 055
     Dates: start: 201310
  2. FORADIL COMBI [Interacting]
     Indication: ASTHMA
     Route: 055
     Dates: start: 201310
  3. CORAXAN [Concomitant]
     Route: 048

REACTIONS (2)
  - Drug interaction [Unknown]
  - Extrasystoles [Recovered/Resolved]
